FAERS Safety Report 4457950-X (Version None)
Quarter: 2004Q3

REPORT INFORMATION
  Report Type: 
  Country: None (occurrence: None)
  Receive Date: 20040924
  Receipt Date: 20031119
  Transmission Date: 20050211
  Serious: Yes (Death, Other)
  Sender: FDA-Public Use
  Company Number: US-BRISTOL-MYERS SQUIBB COMPANY-12439626

PATIENT
  Sex: Female

DRUGS (1)
  1. SERZONE [Suspect]
     Indication: DEPRESSION
     Dosage: DURATION EXCEEDED SIX MONTHS RX FILL DATES BETWEEN 04-JUN-1999 AND 03-JUN-2000

REACTIONS (5)
  - CONFUSIONAL STATE [None]
  - DEATH [None]
  - DIZZINESS [None]
  - HEPATOTOXICITY [None]
  - VISUAL DISTURBANCE [None]
